FAERS Safety Report 20069028 (Version 1)
Quarter: 2021Q4

REPORT INFORMATION
  Report Type: Spontaneous
  Country: US (occurrence: US)
  Receive Date: 20211115
  Receipt Date: 20211115
  Transmission Date: 20220303
  Serious: Yes (Other)
  Sender: FDA-Public Use
  Company Number: US-TEVA-2021-US-1978975

PATIENT
  Sex: Female

DRUGS (5)
  1. AJOVY [Suspect]
     Active Substance: FREMANEZUMAB-VFRM
     Route: 065
     Dates: start: 202110
  2. AJOVY [Suspect]
     Active Substance: FREMANEZUMAB-VFRM
  3. WELLBUTRIN [Concomitant]
     Active Substance: BUPROPION HYDROCHLORIDE
     Dosage: 300 MILLIGRAM DAILY;
  4. PAROXETINE [Concomitant]
     Active Substance: PAROXETINE
     Dosage: 25 MILLIGRAM DAILY;
  5. RIZATRIPTAN [Concomitant]
     Active Substance: RIZATRIPTAN
     Dosage: AS NEEDED

REACTIONS (2)
  - Depression [Unknown]
  - Hyperreflexia [Unknown]

NARRATIVE: CASE EVENT DATE: 20211102
